FAERS Safety Report 4964032-7 (Version None)
Quarter: 2006Q1

REPORT INFORMATION
  Report Type: 
  Country: None (occurrence: None)
  Receive Date: 20060330
  Receipt Date: 20060318
  Transmission Date: 20060701
  Serious: Yes (Death)
  Sender: FDA-Public Use
  Company Number: MC200600212

PATIENT
  Age: 54 Year
  Sex: Male

DRUGS (1)
  1. ANGIOMAX [Suspect]
     Dosage: 0.75 MG/KG, BOLUS, IV BOLUS
     Route: 040
     Dates: start: 20060317, end: 20060317

REACTIONS (1)
  - DEATH [None]
